FAERS Safety Report 23675128 (Version 1)
Quarter: 2024Q1

REPORT INFORMATION
  Report Type: Report from Study
  Country: US (occurrence: US)
  Receive Date: 20240326
  Receipt Date: 20240326
  Transmission Date: 20240410
  Serious: Yes (Hospitalization)
  Sender: FDA-Public Use
  Company Number: US-ABBVIE-5650035

PATIENT
  Sex: Female

DRUGS (1)
  1. SKYRIZI [Suspect]
     Active Substance: RISANKIZUMAB-RZAA
     Indication: Psoriasis
     Route: 058

REACTIONS (6)
  - Cellulitis [Recovered/Resolved]
  - COVID-19 [Recovering/Resolving]
  - Dyspnoea exertional [Recovering/Resolving]
  - Immunodeficiency [Recovering/Resolving]
  - Malaise [Unknown]
  - Swelling face [Unknown]

NARRATIVE: CASE EVENT DATE: 20230101
